FAERS Safety Report 7486866-X (Version None)
Quarter: 2011Q2

REPORT INFORMATION
  Report Type: 
  Country: None (occurrence: None)
  Receive Date: 20110517
  Receipt Date: 20110510
  Transmission Date: 20111010
  Serious: Yes (Hospitalization, Other)
  Sender: FDA-Public Use
  Company Number: US-US-EMD SERONO, INC.-7041645

PATIENT
  Sex: Female
  Weight: 66 kg

DRUGS (6)
  1. ACETAMINOPHEN [Concomitant]
  2. ADDERALL 10 [Concomitant]
  3. ANTIDEPRESSANT [Concomitant]
  4. BIPOLAR MEDICATION [Concomitant]
     Indication: BIPOLAR DISORDER
  5. UNSPECIFIED MEDICATIONS [Concomitant]
  6. REBIF [Suspect]
     Indication: MULTIPLE SCLEROSIS
     Route: 058
     Dates: start: 20100521

REACTIONS (11)
  - BIPOLAR DISORDER [None]
  - UNEVALUABLE EVENT [None]
  - CYST [None]
  - DRUG ABUSE [None]
  - CONCUSSION [None]
  - HEPATIC ENZYME INCREASED [None]
  - HEADACHE [None]
  - CONTUSION [None]
  - DEPRESSION [None]
  - DRUG INTOLERANCE [None]
  - INJECTION SITE ERYTHEMA [None]
